FAERS Safety Report 24647944 (Version 1)
Quarter: 2024Q4

REPORT INFORMATION
  Report Type: Report from Study
  Country: CA (occurrence: CA)
  Receive Date: 20241121
  Receipt Date: 20241121
  Transmission Date: 20250114
  Serious: Yes (Hospitalization, Other)
  Sender: NOVARTIS
  Company Number: CA-002147023-NVSC2024CA156738

PATIENT
  Age: 76 Year
  Sex: Female

DRUGS (2)
  1. KISQALI [Suspect]
     Active Substance: RIBOCICLIB
     Indication: Breast cancer metastatic
     Dosage: 600 MG, QD (FOR 21 DAYS WITH A 7-DAY BREAK)
     Route: 048
     Dates: start: 20240729, end: 20240819
  2. KISQALI [Suspect]
     Active Substance: RIBOCICLIB
     Dosage: 400 MG, QD
     Route: 048

REACTIONS (8)
  - Illness [Unknown]
  - Metastases to bone [Unknown]
  - Electrocardiogram QT prolonged [Unknown]
  - Dyspepsia [Recovered/Resolved]
  - Flatulence [Recovered/Resolved]
  - Electrocardiogram abnormal [Recovered/Resolved]
  - Vomiting [Unknown]
  - Influenza [Unknown]

NARRATIVE: CASE EVENT DATE: 20240701
